FAERS Safety Report 24051438 (Version 2)
Quarter: 2024Q3

REPORT INFORMATION
  Report Type: Spontaneous
  Country: ES (occurrence: ES)
  Receive Date: 20240704
  Receipt Date: 20240708
  Transmission Date: 20241017
  Serious: Yes (Hospitalization)
  Sender: PFIZER
  Company Number: ES-PFIZER INC-202400205088

PATIENT
  Age: 59 Year
  Sex: Male

DRUGS (3)
  1. FLUCONAZOLE [Suspect]
     Active Substance: FLUCONAZOLE
     Indication: Neurocryptococcosis
     Dosage: 1200 MG EVERY 24 H
     Route: 048
  2. AMPHOTERICIN B [Concomitant]
     Active Substance: AMPHOTERICIN B
     Indication: Neurocryptococcosis
     Dosage: 10 MG/KG, SINGLE
     Route: 042
  3. FLUCYTOSINE [Concomitant]
     Active Substance: FLUCYTOSINE
     Indication: Neurocryptococcosis
     Dosage: 100 MG/KG/DAY
     Route: 048

REACTIONS (3)
  - Treatment failure [Unknown]
  - Drug resistance [Unknown]
  - Off label use [Unknown]
